FAERS Safety Report 9857312 (Version 2)
Quarter: 2014Q3

REPORT INFORMATION
  Report Type: Report from Study
  Country: TW (occurrence: TW)
  Receive Date: 20140130
  Receipt Date: 20140819
  Transmission Date: 20150326
  Serious: Yes (Hospitalization)
  Sender: FDA-Public Use
  Company Number: PHHY2014TW010926

PATIENT
  Age: 53 Year
  Sex: Male
  Weight: 78 kg

DRUGS (8)
  1. ZOLEDRONATE [Suspect]
     Active Substance: ZOLEDRONIC ACID
     Indication: PLASMA CELL MYELOMA
     Dates: start: 201008, end: 201304
  2. PREDONINE [Concomitant]
     Active Substance: PREDNISOLONE\PREDNISOLONE ACETATE\PREDNISOLONE SODIUM SUCCINATE
     Indication: PLASMA CELL MYELOMA
     Dosage: 5 MG, PER TAB
     Dates: start: 20131226, end: 20140107
  3. REGROW [Concomitant]
     Indication: UPPER RESPIRATORY TRACT INFECTION
     Dosage: 1 DF, BID
     Route: 048
  4. ROFERON-A [Concomitant]
     Active Substance: INTERFERON ALFA-2A
     Indication: PLASMA CELL MYELOMA
     Dosage: 3 MIU, UNK
     Route: 058
     Dates: start: 20131025, end: 20140122
  5. MUCOSOLVAN [Concomitant]
     Active Substance: AMBROXOL\CLENBUTEROL
     Indication: UPPER RESPIRATORY TRACT INFECTION
     Dosage: 2 DF, BID
     Route: 048
  6. XYZAL [Concomitant]
     Active Substance: LEVOCETIRIZINE DIHYDROCHLORIDE
     Indication: UPPER RESPIRATORY TRACT INFECTION
     Dosage: 1 DF, HS
     Route: 048
  7. COMPOUND GLYCYRRHIZA MIXTURE SOLN [Concomitant]
     Indication: UPPER RESPIRATORY TRACT INFECTION
     Dosage: 10 ML, TID
     Route: 048
  8. ZOLEDRONATE [Suspect]
     Active Substance: ZOLEDRONIC ACID
     Dosage: 4 MG, UNK
     Route: 042
     Dates: start: 20130902, end: 20131230

REACTIONS (3)
  - Bone pain [Recovered/Resolved]
  - Exposed bone in jaw [Recovered/Resolved]
  - Osteonecrosis of jaw [Recovered/Resolved]

NARRATIVE: CASE EVENT DATE: 20130308
